FAERS Safety Report 15929662 (Version 3)
Quarter: 2019Q2

REPORT INFORMATION
  Report Type: Report from Study
  Country: JP (occurrence: JP)
  Receive Date: 20190206
  Receipt Date: 20190509
  Transmission Date: 20190711
  Serious: Yes (Other)
  Sender: FDA-Public Use
  Company Number: JP-BIOCODEX SA-201801593

PATIENT
  Age: 3 Year
  Sex: Male
  Weight: 15 kg

DRUGS (10)
  1. DIACOMIT [Suspect]
     Active Substance: STIRIPENTOL
     Dosage: 200 MG, QD
     Route: 048
     Dates: start: 20150825, end: 20150907
  2. DIACOMIT [Suspect]
     Active Substance: STIRIPENTOL
     Dosage: 200 MG, QD
     Route: 048
     Dates: start: 20151216, end: 20160308
  3. DIACOMIT [Suspect]
     Active Substance: STIRIPENTOL
     Indication: SEVERE MYOCLONIC EPILEPSY OF INFANCY
     Dosage: 150 MG, QD
     Route: 048
     Dates: start: 20150804, end: 20150824
  4. DIACOMIT [Suspect]
     Active Substance: STIRIPENTOL
     Dosage: 350 MG, QD
     Route: 048
     Dates: start: 20151110, end: 20151215
  5. DIACOMIT [Suspect]
     Active Substance: STIRIPENTOL
     Dosage: 250 MG, QD
     Route: 048
     Dates: start: 20150908, end: 20151012
  6. DIACOMIT [Suspect]
     Active Substance: STIRIPENTOL
     Dosage: 70 MG, QD
     Route: 048
     Dates: start: 20160309, end: 20160419
  7. CLOBAZAM. [Concomitant]
     Active Substance: CLOBAZAM
     Indication: SEVERE MYOCLONIC EPILEPSY OF INFANCY
     Dosage: 9 MG, QD
     Route: 048
  8. CLONAZEPAM. [Concomitant]
     Active Substance: CLONAZEPAM
     Indication: SEVERE MYOCLONIC EPILEPSY OF INFANCY
     Dosage: 1.7 MG, QD
     Route: 048
  9. DIACOMIT [Suspect]
     Active Substance: STIRIPENTOL
     Dosage: 300 MG, QD
     Route: 048
     Dates: start: 20151013, end: 20151109
  10. TOPIRAMATE. [Concomitant]
     Active Substance: TOPIRAMATE
     Indication: SEVERE MYOCLONIC EPILEPSY OF INFANCY
     Dosage: 100 MG, QD
     Route: 048

REACTIONS (1)
  - Hepatic function abnormal [Recovered/Resolved]

NARRATIVE: CASE EVENT DATE: 20151208
